FAERS Safety Report 25158494 (Version 2)
Quarter: 2025Q2

REPORT INFORMATION
  Report Type: Spontaneous
  Country: JP (occurrence: JP)
  Receive Date: 20250404
  Receipt Date: 20250516
  Transmission Date: 20250716
  Serious: Yes (Life-Threatening)
  Sender: ASTELLAS
  Company Number: JP-ASTELLAS-2025-AER-015447

PATIENT
  Age: 81 Year
  Sex: Male

DRUGS (1)
  1. VYLOY [Suspect]
     Active Substance: ZOLBETUXIMAB-CLZB
     Indication: Gastric cancer
     Route: 065
     Dates: start: 20250314

REACTIONS (2)
  - Feeding disorder [Not Recovered/Not Resolved]
  - Nausea [Recovered/Resolved]

NARRATIVE: CASE EVENT DATE: 20250314
